FAERS Safety Report 8866519 (Version 1)
Quarter: 2012Q4

REPORT INFORMATION
  Report Type: 
  Country: US (occurrence: US)
  Receive Date: 20121025
  Receipt Date: 20121025
  Transmission Date: 20130627
  Serious: Yes (Other)
  Sender: FDA-Public Use
  Company Number: US-US-EMD SERONO, INC.-7168996

PATIENT
  Sex: Female

DRUGS (1)
  1. REBIF [Suspect]
     Indication: PRODUCT USED FOR UNKNOWN INDICATION
     Route: 058
     Dates: start: 20120808

REACTIONS (5)
  - Self-injurious ideation [Recovered/Resolved]
  - Stress [Unknown]
  - Irritability [Unknown]
  - Injection site erythema [Recovering/Resolving]
  - Injection site bruising [Recovering/Resolving]
